FAERS Safety Report 6571279-5 (Version None)
Quarter: 2010Q1

REPORT INFORMATION
  Report Type: 
  Country: None (occurrence: None)
  Receive Date: 20100129
  Receipt Date: 20100125
  Transmission Date: 20100710
  Serious: Yes (Hospitalization)
  Sender: FDA-Public Use
  Company Number: 2009SP034988

PATIENT
  Age: 59 Year
  Sex: Female

DRUGS (3)
  1. PEG-INTRON [Suspect]
     Indication: HEPATITIS C
     Dosage: 100 MCG; QW; SC
     Route: 058
     Dates: start: 20090710, end: 20091023
  2. REBETOL [Suspect]
     Indication: HEPATITIS C
     Dosage: PO
     Route: 048
     Dates: start: 20090710, end: 20091030
  3. PREDNISOLONE [Suspect]

REACTIONS (2)
  - LYMPHOCYTE STIMULATION TEST POSITIVE [None]
  - STEVENS-JOHNSON SYNDROME [None]
